FAERS Safety Report 9742235 (Version 4)
Quarter: 2013Q4

REPORT INFORMATION
  Report Type: Spontaneous
  Country: JP (occurrence: JP)
  Receive Date: 20131210
  Receipt Date: 20131219
  Transmission Date: 20140711
  Serious: Yes (Other)
  Sender: FDA-Public Use
  Company Number: JP-009507513-1312JPN002966

PATIENT
  Age: 7 Year
  Sex: Female

DRUGS (2)
  1. SINGULAIR CHEWABLE TABLETS 5MG [Suspect]
     Indication: ASTHMA
     Dosage: 5 MG, QD
     Route: 048
     Dates: start: 201309, end: 20131201
  2. SINGULAIR FINE GRANULES 4MG [Suspect]
     Indication: ASTHMA
     Dosage: 4 MG, QD
     Route: 048
     Dates: start: 201003, end: 201203

REACTIONS (1)
  - Dental caries [Unknown]
